FAERS Safety Report 6848341-2 (Version None)
Quarter: 2010Q3

REPORT INFORMATION
  Report Type: 
  Country: None (occurrence: None)
  Receive Date: 20100716
  Receipt Date: 20100707
  Transmission Date: 20110219
  Serious: Yes (Other)
  Sender: FDA-Public Use
  Company Number: JP-JNJFOC-20100509180

PATIENT
  Sex: Female
  Weight: 62 kg

DRUGS (13)
  1. DOXIL [Suspect]
     Indication: OVARIAN CANCER RECURRENT
     Route: 042
  2. DOXIL [Suspect]
     Route: 042
  3. DOXIL [Suspect]
     Route: 042
  4. DOXIL [Suspect]
     Route: 042
  5. DOXIL [Suspect]
     Route: 042
  6. DOXIL [Suspect]
     Route: 042
  7. DOXIL [Suspect]
     Route: 042
  8. DOXIL [Suspect]
     Route: 042
  9. DOXIL [Suspect]
     Route: 042
  10. DEXALTIN [Concomitant]
     Indication: STOMATITIS
     Route: 061
  11. PYDOXAL [Concomitant]
     Indication: PROPHYLAXIS
     Route: 048
  12. PYDOXAL [Concomitant]
     Route: 048
  13. PYDOXAL [Concomitant]
     Route: 048

REACTIONS (1)
  - HEPATIC FUNCTION ABNORMAL [None]
